FAERS Safety Report 5910582-6 (Version None)
Quarter: 2008Q4

REPORT INFORMATION
  Report Type: 
  Country: None (occurrence: None)
  Receive Date: 20081007
  Receipt Date: 20081001
  Transmission Date: 20090506
  Serious: Yes (Other)
  Sender: FDA-Public Use
  Company Number: US-ASTRAZENECA-2008UW12259

PATIENT
  Age: 454 Month
  Sex: Female
  Weight: 72.1 kg

DRUGS (10)
  1. SEROQUEL [Suspect]
     Indication: BIPOLAR DISORDER
     Dosage: 800-1000 MG
     Route: 048
     Dates: start: 20000609
  2. SEROQUEL [Suspect]
     Indication: BIPOLAR I DISORDER
     Dosage: 800-1000 MG
     Route: 048
     Dates: start: 20000609
  3. ABILIFY [Concomitant]
  4. GEODON [Concomitant]
  5. HALDOL [Concomitant]
     Dates: start: 20040101
  6. RISPERDAL [Concomitant]
  7. ZYPREXA [Concomitant]
  8. TRAZODONE HCL [Concomitant]
     Dates: start: 20030101, end: 20050101
  9. ZOLOFT [Concomitant]
     Dates: start: 20030701, end: 20040701
  10. WELLBUTRIN [Concomitant]
     Dates: start: 20011001, end: 20020201

REACTIONS (5)
  - BLOOD CHOLESTEROL INCREASED [None]
  - DIABETES MELLITUS [None]
  - FEMALE STERILISATION [None]
  - HYSTERECTOMY [None]
  - NEUROPATHY PERIPHERAL [None]
